FAERS Safety Report 8501614-X (Version None)
Quarter: 2012Q3

REPORT INFORMATION
  Report Type: 
  Country: None (occurrence: None)
  Receive Date: 20120710
  Receipt Date: 20120626
  Transmission Date: 20120928
  Serious: Yes (Other)
  Sender: FDA-Public Use
  Company Number: CHPA2012US014500

PATIENT
  Sex: Female

DRUGS (2)
  1. EXCEDRIN EXTRA STRENGTH TABLETS [Suspect]
     Indication: HEADACHE
     Dosage: 2 DF, QD
     Route: 048
  2. IBUPROFEN [Concomitant]
     Indication: HEADACHE
     Dosage: UNK

REACTIONS (3)
  - INCORRECT DRUG ADMINISTRATION DURATION [None]
  - BLOOD PRESSURE ABNORMAL [None]
  - RASH MACULAR [None]
